FAERS Safety Report 8363565-3 (Version None)
Quarter: 2012Q2

REPORT INFORMATION
  Report Type: 
  Country: None (occurrence: None)
  Receive Date: 20120516
  Receipt Date: 20120507
  Transmission Date: 20120825
  Serious: Yes (Other)
  Sender: FDA-Public Use
  Company Number: US-JNJFOC-20120407337

PATIENT
  Sex: Female
  Weight: 95.26 kg

DRUGS (4)
  1. FOLIC ACID [Concomitant]
     Indication: COLITIS ULCERATIVE
     Route: 048
     Dates: start: 20020101
  2. CELEXA [Concomitant]
     Indication: DEPRESSION
     Route: 065
  3. LISINOPRIL [Concomitant]
     Indication: HYPERTENSION
     Route: 048
     Dates: start: 20060101
  4. REMICADE [Suspect]
     Indication: COLITIS ULCERATIVE
     Route: 042
     Dates: start: 20110301, end: 20120203

REACTIONS (6)
  - JOINT SWELLING [None]
  - PAIN [None]
  - LUPUS-LIKE SYNDROME [None]
  - ARTHRALGIA [None]
  - HYPOTENSION [None]
  - ANTINUCLEAR ANTIBODY INCREASED [None]
